FAERS Safety Report 12475984 (Version 2)
Quarter: 2016Q3

REPORT INFORMATION
  Report Type: Report from Study
  Country: BR (occurrence: BR)
  Receive Date: 20160617
  Receipt Date: 20160913
  Transmission Date: 20161109
  Serious: Yes (Hospitalization, Other)
  Sender: FDA-Public Use
  Company Number: BR-UCBSA-2016012797

PATIENT
  Age: 29 Year
  Sex: Female
  Weight: 91 kg

DRUGS (7)
  1. TYLEX [Concomitant]
     Active Substance: ACETAMINOPHEN\CODEINE PHOSPHATE
     Indication: ARTHRITIS
     Dosage: 30 MG, UNK
     Route: 048
  2. METHOTREXATE. [Concomitant]
     Active Substance: METHOTREXATE
     Indication: ARTHRITIS
     Dosage: 200 MG, WEEKLY (QW)
     Route: 048
  3. FOLIC ACID. [Concomitant]
     Active Substance: FOLIC ACID
     Indication: ARTHRITIS
     Dosage: UNK
     Route: 048
  4. CHLOROQUINE. [Suspect]
     Active Substance: CHLOROQUINE
     Indication: ARTHRITIS
     Dosage: UNK
     Route: 048
  5. CERTOLIZUMAB PEGOL [Suspect]
     Active Substance: CERTOLIZUMAB PEGOL
     Dosage: UNK
  6. PREDNISONE. [Concomitant]
     Active Substance: PREDNISONE
     Indication: ARTHRITIS
     Dosage: 10 MG, ONCE DAILY (QD)
     Route: 048
  7. CERTOLIZUMAB PEGOL [Suspect]
     Active Substance: CERTOLIZUMAB PEGOL
     Indication: RHEUMATOID ARTHRITIS
     Dosage: 200 MG, EV 15 DAYS

REACTIONS (8)
  - Mouth injury [Recovered/Resolved]
  - Rheumatoid arthritis [Unknown]
  - Vocal cord disorder [Unknown]
  - Tracheostomy malfunction [Recovered/Resolved]
  - Vocal cord paralysis [Not Recovered/Not Resolved]
  - Hemiplegia [Unknown]
  - Swollen tongue [Recovered/Resolved]
  - Pregnancy [Unknown]

NARRATIVE: CASE EVENT DATE: 2010
